FAERS Safety Report 7384194-4 (Version None)
Quarter: 2011Q1

REPORT INFORMATION
  Report Type: 
  Country: None (occurrence: None)
  Receive Date: 20110330
  Receipt Date: 20110323
  Transmission Date: 20110831
  Serious: Yes (Other)
  Sender: FDA-Public Use
  Company Number: B0709433A

PATIENT
  Age: 37 Year
  Sex: Female

DRUGS (6)
  1. GLUCOPHAGE [Concomitant]
     Dosage: 1000MG TWICE PER DAY
     Route: 048
  2. AUGMENTIN [Suspect]
     Indication: PNEUMONIA BACTERIAL
     Route: 048
     Dates: start: 20100219, end: 20100223
  3. DIAMICRON [Concomitant]
     Dosage: 30MG TWICE PER DAY
     Route: 048
  4. KLACID [Concomitant]
     Indication: PNEUMONIA
     Route: 065
     Dates: start: 20100213, end: 20100217
  5. NEXIUM [Concomitant]
     Dosage: 40MG PER DAY
     Route: 048
  6. DAFALGAN [Concomitant]
     Dosage: 1G PER DAY
     Route: 048

REACTIONS (4)
  - TYPE I HYPERSENSITIVITY [None]
  - PRURITUS [None]
  - LYMPHOCYTE TRANSFORMATION TEST POSITIVE [None]
  - RASH MACULO-PAPULAR [None]
